FAERS Safety Report 6793768-0 (Version None)
Quarter: 2010Q2

REPORT INFORMATION
  Report Type: 
  Country: None (occurrence: None)
  Receive Date: 20100624
  Receipt Date: 20090616
  Transmission Date: 20101027
  Serious: No
  Sender: FDA-Public Use
  Company Number: US-PFIZER INC-2009179112

PATIENT
  Age: 48 Year
  Sex: Female

DRUGS (2)
  1. DEPO-PROVERA [Suspect]
     Indication: OFF LABEL USE
     Dosage: UNK
     Dates: start: 20090226
  2. DEPO-PROVERA [Suspect]
     Indication: MENSTRUAL DISCOMFORT

REACTIONS (2)
  - BREAST TENDERNESS [None]
  - DRUG INEFFECTIVE FOR UNAPPROVED INDICATION [None]
